FAERS Safety Report 9536405 (Version 1)
Quarter: 2013Q3

REPORT INFORMATION
  Report Type: Report from Study
  Country: CA (occurrence: CA)
  Receive Date: 20130919
  Receipt Date: 20130919
  Transmission Date: 20140515
  Serious: Yes (Other)
  Sender: FDA-Public Use
  Company Number: CA-JNJFOC-20130907099

PATIENT
  Age: 23 Year
  Sex: Male
  Weight: 87 kg

DRUGS (1)
  1. REMICADE [Suspect]
     Indication: COLITIS ULCERATIVE
     Route: 042
     Dates: start: 20060525, end: 20130625

REACTIONS (2)
  - Lymphoma [Unknown]
  - Pulmonary embolism [Unknown]
